FAERS Safety Report 16664012 (Version 1)
Quarter: 2019Q3

REPORT INFORMATION
  Report Type: Spontaneous
  Country: DK (occurrence: DK)
  Receive Date: 20190802
  Receipt Date: 20190802
  Transmission Date: 20191004
  Serious: Yes (Other)
  Sender: FDA-Public Use
  Company Number: DK-TEVA-2019-DK-1086242

PATIENT
  Age: 72 Year
  Sex: Male
  Weight: 68 kg

DRUGS (3)
  1. SILDENAFIL ^1A FARMA^ [Concomitant]
     Indication: ERECTILE DYSFUNCTION
     Dosage: STYRKE: 100 MG. DOSIS: 1 TABLET VED BEHOV
     Route: 048
     Dates: start: 20151217
  2. AMLODIPIN ^ACCORD^ [Concomitant]
     Indication: HYPERTENSION
     Dosage: STYRKE: 10 MG
     Route: 048
     Dates: start: 20150728
  3. LOSARTANKALIUM/HYDROCHLORTHIAZID ^TEVA^ [Suspect]
     Active Substance: HYDROCHLOROTHIAZIDE\LOSARTAN POTASSIUM
     Indication: HYPERTENSION
     Dosage: STYRKE: 100+25 MG
     Route: 048
     Dates: start: 20150724, end: 20190708

REACTIONS (1)
  - Squamous cell carcinoma of skin [Unknown]

NARRATIVE: CASE EVENT DATE: 20181231
